FAERS Safety Report 24358129 (Version 1)
Quarter: 2024Q3

REPORT INFORMATION
  Report Type: Spontaneous
  Country: CY (occurrence: CY)
  Receive Date: 20240924
  Receipt Date: 20240924
  Transmission Date: 20241016
  Serious: Yes (Other)
  Sender: PERRIGO
  Company Number: CY-MLMSERVICE-20240913-PI192514-00227-1

PATIENT
  Age: 35 Year
  Sex: Male

DRUGS (1)
  1. MOMETASONE FUROATE [Suspect]
     Active Substance: MOMETASONE FUROATE
     Indication: Rhinitis allergic
     Dosage: NASAL MOMETASONE TWICE DAILY FOR THREE WEEKS
     Route: 045

REACTIONS (1)
  - Herpes simplex oesophagitis [Recovering/Resolving]
